FAERS Safety Report 6163140-5 (Version None)
Quarter: 2009Q2

REPORT INFORMATION
  Report Type: 
  Country: None (occurrence: None)
  Receive Date: 20090422
  Receipt Date: 20090417
  Transmission Date: 20091009
  Serious: Yes (Other)
  Sender: FDA-Public Use
  Company Number: BR-JNJFOC-20090404668

PATIENT
  Age: 28 Year
  Sex: Female

DRUGS (1)
  1. MICRONOR [Suspect]
     Indication: CONTRACEPTION
     Route: 065

REACTIONS (6)
  - ABDOMINAL PAIN UPPER [None]
  - BREAST PAIN [None]
  - DIARRHOEA [None]
  - HEADACHE [None]
  - LACTATION DISORDER [None]
  - VOMITING [None]
